FAERS Safety Report 9055670 (Version 5)
Quarter: 2019Q2

REPORT INFORMATION
  Report Type: Report from Study
  Country: ES (occurrence: ES)
  Receive Date: 20130206
  Receipt Date: 20190401
  Transmission Date: 20190711
  Serious: Yes (Death, Hospitalization)
  Sender: FDA-Public Use
  Company Number: ES-ROCHE-1187466

PATIENT
  Age: 43 Year
  Sex: Male
  Weight: 62.5 kg

DRUGS (19)
  1. OXALIPLATIN. [Suspect]
     Active Substance: OXALIPLATIN
     Indication: COLON CANCER
     Dosage: CYCLE 1
     Route: 042
     Dates: start: 20121220
  2. IRINOTECAN [Suspect]
     Active Substance: IRINOTECAN
     Dosage: CYCLE 2. LAST DOSE PRIOR TO SAE: 22/JAN/2013
     Route: 065
     Dates: start: 20130122
  3. OXALIPLATIN. [Suspect]
     Active Substance: OXALIPLATIN
     Dosage: CYCLE 2. LAST DOSE PRIOR TO SAE: 22/JAN/2013
     Route: 065
     Dates: start: 20130122
  4. NOLOTIL [Concomitant]
     Indication: TUMOUR PAIN
     Route: 048
     Dates: start: 201212
  5. TARGIN [Concomitant]
     Active Substance: NALOXONE HYDROCHLORIDE\OXYCODONE HYDROCHLORIDE
     Indication: PAIN
     Route: 065
     Dates: start: 20120123
  6. BEVACIZUMAB. [Suspect]
     Active Substance: BEVACIZUMAB
     Indication: COLON CANCER
     Dosage: CYCLE 1
     Route: 042
     Dates: start: 20121220
  7. ALDACTONE [Concomitant]
     Active Substance: SPIRONOLACTONE
     Indication: OEDEMA
     Route: 048
     Dates: start: 20121219
  8. OMEPRAZOL [Concomitant]
     Active Substance: OMEPRAZOLE
     Indication: PROPHYLAXIS
     Route: 048
     Dates: start: 201211
  9. FLUOROURACIL. [Suspect]
     Active Substance: FLUOROURACIL
     Dosage: CYCLE 2. LAST DOSE PRIOR TO SAE: 22/JAN/2013
     Route: 065
     Dates: start: 20130122
  10. IRINOTECAN [Suspect]
     Active Substance: IRINOTECAN
     Indication: COLON CANCER
     Dosage: CYCLE 1
     Route: 042
     Dates: start: 20121220
  11. SEVREDOL [Concomitant]
     Active Substance: MORPHINE
     Indication: TUMOUR PAIN
     Dosage: 10/5MG/12HRS
     Route: 065
     Dates: start: 20121123
  12. BEVACIZUMAB. [Suspect]
     Active Substance: BEVACIZUMAB
     Dosage: CYCLE 2. LAST DOSE PRIOR TO SAE: 22/JAN/2013
     Route: 065
     Dates: start: 20130122
  13. FLUOROURACIL. [Suspect]
     Active Substance: FLUOROURACIL
     Indication: COLON CANCER
     Dosage: CYCLE 1.
     Route: 042
     Dates: start: 20121220
  14. FOLINIC ACID [Suspect]
     Active Substance: LEUCOVORIN
     Dosage: CYCLE 2. LAST DOSE PRIOR TO SAE: 22/JAN/2013
     Route: 042
     Dates: start: 20130122
  15. FORTECORTIN [Concomitant]
     Active Substance: DEXAMETHASONE
     Indication: PROPHYLAXIS
     Route: 065
     Dates: start: 201211
  16. FOLINIC ACID [Suspect]
     Active Substance: LEUCOVORIN
     Indication: COLON CANCER
     Dosage: CYCLE 1
     Route: 042
     Dates: start: 20121220
  17. FLUOROURACIL. [Suspect]
     Active Substance: FLUOROURACIL
     Dosage: CYCLE 1.
     Route: 065
     Dates: start: 20121221
  18. FUROSEMIDA [Concomitant]
     Active Substance: FUROSEMIDE
     Indication: OEDEMA
     Route: 048
     Dates: start: 20121219
  19. DIAZEPAM. [Concomitant]
     Active Substance: DIAZEPAM
     Indication: ANXIETY
     Route: 048
     Dates: start: 20121115

REACTIONS (2)
  - Neutropenic sepsis [Fatal]
  - Tumour lysis syndrome [Fatal]

NARRATIVE: CASE EVENT DATE: 20130129
